FAERS Safety Report 15000171 (Version 2)
Quarter: 2018Q2

REPORT INFORMATION
  Report Type: Report from Study
  Country: US (occurrence: US)
  Receive Date: 20180612
  Receipt Date: 20180618
  Transmission Date: 20180711
  Serious: Yes (Hospitalization, Other)
  Sender: FDA-Public Use
  Company Number: US-GILEAD-2018-0342935

PATIENT
  Age: 10 Year
  Sex: Male
  Weight: 32.2 kg

DRUGS (11)
  1. AMBRISENTAN [Suspect]
     Active Substance: AMBRISENTAN
     Indication: PRODUCT USED FOR UNKNOWN INDICATION
     Dosage: 5 MG, QD
     Route: 048
     Dates: start: 201705
  2. LOTRISONE [Concomitant]
     Active Substance: BETAMETHASONE DIPROPIONATE\CLOTRIMAZOLE
  3. ADCIRCA [Concomitant]
     Active Substance: TADALAFIL
  4. TREPROSTINIL [Concomitant]
     Active Substance: TREPROSTINIL
  5. STRATTERA [Concomitant]
     Active Substance: ATOMOXETINE HYDROCHLORIDE
  6. REMODULIN [Concomitant]
     Active Substance: TREPROSTINIL
  7. ASPIRIN                            /00002701/ [Concomitant]
     Active Substance: ASPIRIN
  8. DIGOX [Concomitant]
     Active Substance: DIGOXIN
  9. LANOXIN [Concomitant]
     Active Substance: DIGOXIN
  10. FERROUS SULFATE ANHYDROUS. [Concomitant]
     Active Substance: FERROUS SULFATE ANHYDROUS
  11. GLYCINE. [Concomitant]
     Active Substance: GLYCINE

REACTIONS (2)
  - Device related infection [Recovered/Resolved]
  - Off label use [Not Recovered/Not Resolved]

NARRATIVE: CASE EVENT DATE: 201705
